FAERS Safety Report 4945842-9 (Version None)
Quarter: 2006Q1

REPORT INFORMATION
  Report Type: 
  Country: None (occurrence: None)
  Receive Date: 20060117
  Receipt Date: 20050127
  Transmission Date: 20060701
  Serious: Yes (Other)
  Sender: FDA-Public Use
  Company Number: A03200500273

PATIENT
  Age: 73 Year
  Sex: Male
  Weight: 81.6475 kg

DRUGS (8)
  1. PLAVIX [Suspect]
     Indication: STENT PLACEMENT
     Dosage: 75 MG QD ORAL
     Route: 048
     Dates: start: 20040801
  2. PLETAL [Suspect]
     Dosage: 100 MG QD - ORAL
     Route: 048
     Dates: start: 20010101, end: 20040930
  3. ATORVASTATIN [Concomitant]
  4. FOSINOPRIL SODIUM [Concomitant]
  5. METFORMIN HYDROCHLORIDE [Concomitant]
  6. BIMATOPROST [Concomitant]
  7. PIOGLITAZONE HCL [Concomitant]
  8. ASPIRIN [Concomitant]

REACTIONS (6)
  - DIZZINESS [None]
  - DRUG INTERACTION [None]
  - HYPERHIDROSIS [None]
  - LOSS OF CONSCIOUSNESS [None]
  - MALAISE [None]
  - NAUSEA [None]
